FAERS Safety Report 15772728 (Version 1)
Quarter: 2018Q4

REPORT INFORMATION
  Report Type: Spontaneous
  Country: US (occurrence: US)
  Receive Date: 20181228
  Receipt Date: 20181228
  Transmission Date: 20190205
  Serious: No
  Sender: FDA-Public Use
  Company Number: US-JNJFOC-20181201127

PATIENT
  Sex: Female

DRUGS (3)
  1. TYLENOL EXTRA STRENGTH [Suspect]
     Active Substance: ACETAMINOPHEN
     Indication: PROCEDURAL PAIN
     Dosage: TOOK 2 MORE SINCE(DATE NOT PROVIDED).HAVEN^T TAKEN ANY NOW (TYLENOL STOP DATE UNKNOWN)
     Route: 048
     Dates: start: 20181128, end: 20181128
  2. TYLENOL EXTRA STRENGTH [Suspect]
     Active Substance: ACETAMINOPHEN
     Indication: PROCEDURAL PAIN
     Dosage: ON TUESDAY FROM 2:30AM TO 11 O^CLOCK (AM OR PM NOT CONFIRMED) TOOK TEN TYLENOL
     Route: 048
     Dates: start: 20181127, end: 20181127
  3. TYLENOL EXTRA STRENGTH [Suspect]
     Active Substance: ACETAMINOPHEN
     Indication: PROCEDURAL PAIN
     Dosage: TOOK SIX TOTAL ON MONDAY
     Route: 048
     Dates: start: 20181126, end: 20181126

REACTIONS (4)
  - Product use in unapproved indication [Unknown]
  - Abdominal discomfort [Recovering/Resolving]
  - Overdose [Unknown]
  - Off label use [Unknown]

NARRATIVE: CASE EVENT DATE: 201811
